FAERS Safety Report 20748613 (Version 1)
Quarter: 2022Q2

REPORT INFORMATION
  Report Type: Spontaneous
  Country: JP (occurrence: JP)
  Receive Date: 20220426
  Receipt Date: 20220426
  Transmission Date: 20220721
  Serious: Yes (Hospitalization)
  Sender: FDA-Public Use
  Company Number: JP-SUN PHARMACEUTICAL INDUSTRIES LTD-2022RR-333242

PATIENT
  Age: 72 Year
  Sex: Male

DRUGS (2)
  1. MINOCYCLINE [Suspect]
     Active Substance: MINOCYCLINE HYDROCHLORIDE
     Indication: Neurodermatitis
     Dosage: 100 MILLIGRAM, DAILY
     Route: 065
  2. CISPLATIN [Suspect]
     Active Substance: CISPLATIN
     Indication: Squamous cell carcinoma of the hypopharynx
     Dosage: UNK
     Route: 065

REACTIONS (5)
  - Oropharyngeal discolouration [Unknown]
  - Tissue discolouration [Unknown]
  - Disease progression [Unknown]
  - Thyroid disorder [Unknown]
  - Skin discolouration [Unknown]
